FAERS Safety Report 26005998 (Version 1)
Quarter: 2025Q4

REPORT INFORMATION
  Report Type: Spontaneous
  Country: EU (occurrence: EU)
  Receive Date: 20251106
  Receipt Date: 20251106
  Transmission Date: 20260118
  Serious: Yes (Other)
  Sender: BAYER HEALTHCARE PHARMACEUTICALS INC.
  Company Number: None

PATIENT
  Age: 42 Year
  Sex: Female
  Weight: 62 kg

DRUGS (1)
  1. MIRENA [Suspect]
     Active Substance: LEVONORGESTREL
     Indication: Endometriosis
     Dosage: 20?G/DAY
     Route: 015
     Dates: start: 20250217, end: 20250923

REACTIONS (8)
  - Suicidal ideation [Recovering/Resolving]
  - Paranoia [Recovering/Resolving]
  - Vaginal haemorrhage [Recovering/Resolving]
  - Depressed mood [Unknown]
  - Affect lability [Unknown]
  - Irritability [Unknown]
  - Anger [Unknown]
  - Bacterial vaginosis [Unknown]

NARRATIVE: CASE EVENT DATE: 20250301
